FAERS Safety Report 13517342 (Version 3)
Quarter: 2017Q3

REPORT INFORMATION
  Report Type: Report from Study
  Country: US (occurrence: US)
  Receive Date: 20170505
  Receipt Date: 20170919
  Transmission Date: 20171127
  Serious: Yes (Hospitalization)
  Sender: FDA-Public Use
  Company Number: US-PURDUE PHARMA-USA-2017-0138589

PATIENT
  Age: 70 Year
  Sex: Male

DRUGS (2)
  1. OXYCODONE HYDROCHLORIDE. [Suspect]
     Active Substance: OXYCODONE HYDROCHLORIDE
     Indication: PANCREATITIS
     Dosage: 80 MG, Q12H
     Route: 048
     Dates: start: 201704, end: 20170501
  2. OXYCODONE HYDROCHLORIDE. [Suspect]
     Active Substance: OXYCODONE HYDROCHLORIDE
     Dosage: UNK
     Route: 048
     Dates: start: 2003

REACTIONS (2)
  - Formication [Unknown]
  - Vascular graft [Recovered/Resolved]

NARRATIVE: CASE EVENT DATE: 20170330
